FAERS Safety Report 9271926 (Version 1)
Quarter: 2013Q2

REPORT INFORMATION
  Report Type: Spontaneous
  Country: IT (occurrence: IT)
  Receive Date: 20130506
  Receipt Date: 20130506
  Transmission Date: 20140414
  Serious: Yes (Life-Threatening)
  Sender: FDA-Public Use
  Company Number: IT-TEVA-401146ISR

PATIENT
  Age: 65 Year
  Sex: Female

DRUGS (2)
  1. CEFTRIAXONE RATIOPHARM [Suspect]
     Indication: BRONCHITIS
     Dosage: 1 GRAM DAILY; 1G/3,5ML POWDER AND SOLVENT FOR INJECTABLE SOLUTION
     Route: 030
     Dates: start: 20130418, end: 20130418
  2. BENTELAN [Concomitant]
     Dosage: (EFFERVESCENT TABLETS)

REACTIONS (3)
  - Bronchospasm [Recovered/Resolved with Sequelae]
  - Rash maculo-papular [Recovered/Resolved with Sequelae]
  - Oedema [Recovered/Resolved with Sequelae]
